FAERS Safety Report 7821710-X (Version None)
Quarter: 2011Q4

REPORT INFORMATION
  Report Type: 
  Country: None (occurrence: None)
  Receive Date: 20111018
  Receipt Date: 20100917
  Transmission Date: 20120403
  Serious: No
  Sender: FDA-Public Use
  Company Number: US-ASTRAZENECA-2010SE44011

PATIENT
  Sex: Female
  Weight: 76.2 kg

DRUGS (2)
  1. SYMBICORT [Suspect]
     Route: 055
     Dates: start: 20100921
  2. SYMBICORT [Suspect]
     Indication: CHRONIC OBSTRUCTIVE PULMONARY DISEASE
     Dosage: 160/4.5 MCG TWO TIMES A DAY
     Route: 055
     Dates: start: 20090101, end: 20100916

REACTIONS (5)
  - HEADACHE [None]
  - EYE PAIN [None]
  - LACRIMATION INCREASED [None]
  - MUSCLE SPASMS [None]
  - ABDOMINAL PAIN UPPER [None]
